FAERS Safety Report 4322444-9 (Version None)
Quarter: 2004Q1

REPORT INFORMATION
  Report Type: 
  Country: None (occurrence: None)
  Receive Date: 20040319
  Receipt Date: 20040304
  Transmission Date: 20041129
  Serious: Yes (Other)
  Sender: FDA-Public Use
  Company Number: S04-GER-00950-01

PATIENT
  Sex: Male

DRUGS (3)
  1. CIPRALEX (ESCITALOPRAM) [Suspect]
     Dosage: 20 MG QD PO
     Route: 048
     Dates: start: 20031201
  2. CIPRALEX (ESCITALOPRAM) [Suspect]
     Dosage: 10 MG QD PO
     Route: 048
     Dates: end: 20040304
  3. ZOPICLONE [Concomitant]

REACTIONS (5)
  - DRUG EFFECT DECREASED [None]
  - LEUKOPENIA [None]
  - NEUTROPENIA [None]
  - SEXUAL DYSFUNCTION [None]
  - SOMNOLENCE [None]
